FAERS Safety Report 8501368-7 (Version None)
Quarter: 2012Q3

REPORT INFORMATION
  Report Type: 
  Country: None (occurrence: None)
  Receive Date: 20120710
  Receipt Date: 20120701
  Transmission Date: 20120928
  Serious: Yes (Hospitalization)
  Sender: FDA-Public Use
  Company Number: FR-ABBOTT-12P-056-0952787-00

PATIENT
  Sex: Male
  Weight: 79 kg

DRUGS (10)
  1. BACTRIM DS [Concomitant]
     Indication: PROPHYLAXIS
  2. BACTRIM DS [Concomitant]
     Indication: PNEUMOCYSTIS JIROVECI PNEUMONIA
     Dosage: 1/DAY
  3. ACETAMINOPHEN [Concomitant]
     Indication: PROPHYLAXIS
  4. PLACEBO [Concomitant]
     Indication: PRODUCT USED FOR UNKNOWN INDICATION
  5. RITONAVIR [Suspect]
     Indication: HIV INFECTION
     Dosage: DAILY
     Route: 048
     Dates: start: 20120323
  6. BLINDED TRIAL MED-VIIV [Suspect]
     Indication: HIV INFECTION
     Route: 048
     Dates: start: 20120323
  7. ATAZANAVIR [Suspect]
     Indication: HIV INFECTION
     Dosage: DAILY
     Dates: start: 20120323
  8. ACETAMINOPHEN [Concomitant]
     Indication: PNEUMOCYSTIS JIROVECI PNEUMONIA
     Dosage: 1-4 G/D AS NECESSARY
  9. TRUVADA [Suspect]
     Indication: HIV INFECTION
     Dates: start: 20120323
  10. COTRIM [Concomitant]
     Indication: PRODUCT USED FOR UNKNOWN INDICATION

REACTIONS (10)
  - LYMPHADENOPATHY [None]
  - LYMPH NODE PAIN [None]
  - CYTOMEGALOVIRUS INFECTION [None]
  - SYSTEMIC INFLAMMATORY RESPONSE SYNDROME [None]
  - NIGHT SWEATS [None]
  - LYMPHOCYTE COUNT INCREASED [None]
  - ASTHENIA [None]
  - HYPERAESTHESIA [None]
  - HYPERHIDROSIS [None]
  - PYREXIA [None]
